FAERS Safety Report 8352747-2 (Version None)
Quarter: 2012Q2

REPORT INFORMATION
  Report Type: 
  Country: None (occurrence: None)
  Receive Date: 20120511
  Receipt Date: 20081111
  Transmission Date: 20120825
  Serious: No
  Sender: FDA-Public Use
  Company Number: US-TEVA-2008000668

PATIENT
  Sex: Male
  Weight: 72.64 kg

DRUGS (1)
  1. TREANDA [Suspect]
     Indication: NON-HODGKIN'S LYMPHOMA
     Route: 042
     Dates: start: 20080901

REACTIONS (1)
  - RASH ERYTHEMATOUS [None]
